FAERS Safety Report 7423719-7 (Version None)
Quarter: 2011Q2

REPORT INFORMATION
  Report Type: 
  Country: None (occurrence: None)
  Receive Date: 20110413
  Receipt Date: 20110413
  Transmission Date: 20111010
  Serious: No
  Sender: FDA-Public Use
  Company Number: None

PATIENT
  Sex: Female
  Weight: 69.8539 kg

DRUGS (1)
  1. LAMOTRIGINE [Suspect]
     Indication: EPILEPSY
     Dosage: 100MG 2 TIMES A DAY PO
     Route: 048
     Dates: start: 20110330, end: 20110405

REACTIONS (4)
  - BALANCE DISORDER [None]
  - FEELING ABNORMAL [None]
  - DECREASED ACTIVITY [None]
  - DIZZINESS [None]
